FAERS Safety Report 8932934 (Version 1)
Quarter: 2012Q4

REPORT INFORMATION
  Report Type: Spontaneous
  Country: GB (occurrence: None)
  Receive Date: 20121119
  Receipt Date: 20121119
  Transmission Date: 20130627
  Serious: Yes (Other)
  Sender: FDA-Public Use
  Company Number: AUR-APL-2012-04834

PATIENT
  Age: 50 Year
  Sex: Female

DRUGS (3)
  1. RIBAVIRIN [Suspect]
     Indication: HEPATITIS C
     Dosage: 2 in 1 day, ora.
     Route: 048
     Dates: start: 20120813
  2. PEGINTERFERON ALFA 2B [Suspect]
     Indication: HEPATITIS C
     Route: 048
     Dates: start: 20120813
  3. TELAPREVIR [Suspect]
     Indication: HEPATITIS C
     Route: 048
     Dates: start: 20120813

REACTIONS (2)
  - Haemorrhoids [None]
  - Fatigue [None]
